FAERS Safety Report 8340323-7 (Version None)
Quarter: 2012Q2

REPORT INFORMATION
  Report Type: 
  Country: None (occurrence: None)
  Receive Date: 20120507
  Receipt Date: 20120507
  Transmission Date: 20120825
  Serious: Yes (Other)
  Sender: FDA-Public Use
  Company Number: None

PATIENT
  Age: 59 Year
  Sex: Male
  Weight: 74.842 kg

DRUGS (1)
  1. TESTOSTERONE CYPIONATE [Suspect]
     Indication: BLOOD TESTOSTERONE DECREASED
     Dosage: |DOSAGETEXT: 1 ML||STRENGTH: 200MG/ML||FREQ: EVERY WEEK||ROUTE: INTRAMUSCULAR|
     Route: 030
     Dates: start: 20101101, end: 20111101

REACTIONS (5)
  - WEIGHT DECREASED [None]
  - NAUSEA [None]
  - DIARRHOEA [None]
  - ASTHENIA [None]
  - VOMITING [None]
